FAERS Safety Report 20724299 (Version 1)
Quarter: 2022Q2

REPORT INFORMATION
  Report Type: Report from Study
  Country: MX (occurrence: MX)
  Receive Date: 20220419
  Receipt Date: 20220419
  Transmission Date: 20220721
  Serious: Yes (Other)
  Sender: FDA-Public Use
  Company Number: MX-NOVARTISPH-NVSC2022MX090300

PATIENT
  Sex: Female
  Weight: 40 kg

DRUGS (1)
  1. DIOVAN [Suspect]
     Active Substance: VALSARTAN
     Indication: Hypertension
     Dosage: 4 DOSAGE FORM, QD (2 DF AT BREAKFAST AND 2 DF AT DINNER)
     Route: 048
     Dates: start: 2017

REACTIONS (5)
  - Gait inability [Unknown]
  - Musculoskeletal discomfort [Unknown]
  - Urinary tract infection [Unknown]
  - Nervousness [Unknown]
  - Off label use [Unknown]
